FAERS Safety Report 9271773 (Version 1)
Quarter: 2013Q2

REPORT INFORMATION
  Report Type: Spontaneous
  Country: US (occurrence: US)
  Receive Date: 20130506
  Receipt Date: 20130506
  Transmission Date: 20140414
  Serious: Yes (Other)
  Sender: FDA-Public Use
  Company Number: US-NOVOPROD-377043

PATIENT
  Age: 45 Year
  Sex: Male

DRUGS (3)
  1. LEVEMIR [Suspect]
     Indication: TYPE 2 DIABETES MELLITUS
     Dosage: 46 U QD
     Route: 058
     Dates: start: 201211, end: 201211
  2. LEVEMIR [Suspect]
     Dosage: 20 UNITS QD
     Dates: start: 201211
  3. LEVEMIR [Suspect]
     Dosage: 40 U QD
     Dates: start: 201211

REACTIONS (2)
  - Loss of consciousness [Recovered/Resolved]
  - Fall [Recovered/Resolved]
